FAERS Safety Report 14504990 (Version 1)
Quarter: 2018Q1

REPORT INFORMATION
  Report Type: Spontaneous
  Country: US (occurrence: US)
  Receive Date: 20180208
  Receipt Date: 20180208
  Transmission Date: 20180509
  Serious: No
  Sender: FDA-Public Use
  Company Number: US-JNJFOC-20171233313

PATIENT
  Sex: Male

DRUGS (1)
  1. IMBRUVICA [Suspect]
     Active Substance: IBRUTINIB
     Indication: MANTLE CELL LYMPHOMA
     Route: 048
     Dates: start: 20160328, end: 20171205

REACTIONS (5)
  - Throat tightness [Unknown]
  - Abdominal discomfort [Unknown]
  - Speech disorder [Unknown]
  - Vomiting [Unknown]
  - Pyrexia [Unknown]
